FAERS Safety Report 20106994 (Version 1)
Quarter: 2021Q4

REPORT INFORMATION
  Report Type: Spontaneous
  Country: US (occurrence: None)
  Receive Date: 20211123
  Receipt Date: 20211123
  Transmission Date: 20220303
  Serious: Yes (Hospitalization)
  Sender: FDA-Public Use
  Company Number: None

PATIENT
  Sex: Female

DRUGS (4)
  1. HUMIRA [Suspect]
     Active Substance: ADALIMUMAB
     Indication: Arthritis
     Dosage: FREQUENCY : WEEKLY;?
     Route: 058
     Dates: start: 20180210
  2. CARAFATE [Concomitant]
     Active Substance: SUCRALFATE
  3. METOPROL TAR [Concomitant]
  4. PROTONIX PAK [Concomitant]

REACTIONS (5)
  - Myocardial infarction [None]
  - Pneumonia [None]
  - Diabetes mellitus inadequate control [None]
  - Haematochezia [None]
  - Therapy interrupted [None]
